FAERS Safety Report 7715715-7 (Version None)
Quarter: 2011Q3

REPORT INFORMATION
  Report Type: 
  Country: None (occurrence: None)
  Receive Date: 20110829
  Receipt Date: 20110825
  Transmission Date: 20111222
  Serious: Yes (Hospitalization)
  Sender: FDA-Public Use
  Company Number: FR-PFIZER INC-2011196374

PATIENT
  Age: 63 Year
  Sex: Male

DRUGS (7)
  1. PANTOPRAZOLE [Suspect]
     Dosage: 40 MG, 1X/DAY
     Dates: end: 20110503
  2. VALIUM [Suspect]
     Dosage: UNK
     Route: 048
     Dates: start: 20110504, end: 20110504
  3. PANTOPRAZOLE SODIUM [Suspect]
     Dosage: 20 MG, 1X/DAY
     Route: 048
     Dates: start: 20110504, end: 20110505
  4. ALFUZOSIN HCL [Concomitant]
     Dosage: 10 MG
  5. ATARAX [Concomitant]
     Dosage: 2 DF
  6. TRANXENE [Concomitant]
     Dosage: 10 MG
  7. TRANSIPEG [Concomitant]
     Dosage: 2 DF

REACTIONS (3)
  - AGITATION [None]
  - CONFUSIONAL STATE [None]
  - HALLUCINATION [None]
